FAERS Safety Report 4743711-0 (Version None)
Quarter: 2005Q3

REPORT INFORMATION
  Report Type: 
  Country: None (occurrence: None)
  Receive Date: 20050809
  Receipt Date: 20050726
  Transmission Date: 20060218
  Serious: Yes (Life-Threatening, Hospitalization)
  Sender: FDA-Public Use
  Company Number: GBWYE860227JUL05

PATIENT
  Age: 29 Year
  Sex: Female

DRUGS (2)
  1. EFFEXOR [Suspect]
     Indication: DEPRESSION
     Dosage: 225MG ORAL
     Route: 048
     Dates: start: 20030601
  2. MICROGYNON (ETHINYLESTRADIOL/LEVONORGESTREL, , 0) [Suspect]
     Indication: CONTRACEPTION
     Dosage: 1 TABLET 1X PER 1 DAY ORAL
     Route: 048
     Dates: start: 19990101, end: 20050101

REACTIONS (3)
  - INTERMITTENT CLAUDICATION [None]
  - PERIPHERAL EMBOLISM [None]
  - PULMONARY EMBOLISM [None]
